FAERS Safety Report 8906409 (Version 1)
Quarter: 2012Q4

REPORT INFORMATION
  Report Type: Spontaneous
  Country: US (occurrence: None)
  Receive Date: 20121109
  Receipt Date: 20121109
  Transmission Date: 20130627
  Serious: Yes (Hospitalization)
  Sender: FDA-Public Use
  Company Number: None

PATIENT

DRUGS (1)
  1. SULFAMETHOXAZOLE/TMP DS [Suspect]
     Dates: start: 20120909, end: 20120910

REACTIONS (5)
  - Muscle spasms [None]
  - Headache [None]
  - Hyperhidrosis [None]
  - Tremor [None]
  - Disorientation [None]
